FAERS Safety Report 8967608 (Version 1)
Quarter: 2012Q4

REPORT INFORMATION
  Report Type: 
  Country: IN (occurrence: IN)
  Receive Date: 20121214
  Receipt Date: 20121214
  Transmission Date: 20130627
  Serious: Yes (Hospitalization)
  Sender: FDA-Public Use
  Company Number: IN-PFIZER INC-2012311668

PATIENT
  Age: 24 Year
  Sex: Male

DRUGS (10)
  1. ONDANSETRON HCL [Suspect]
     Indication: ACUTE GASTROENTERITIS
     Dosage: UNK
  2. ONDANSETRON HCL [Suspect]
     Indication: NAUSEA
     Dosage: 4 MG
  3. OFLOXACIN [Concomitant]
     Indication: ACUTE GASTROENTERITIS
     Route: 048
  4. ORNIDAZOLE [Concomitant]
     Indication: ACUTE GASTROENTERITIS
  5. RIFAMPICIN [Concomitant]
     Indication: PULMONARY TUBERCULOSIS
  6. ISONIAZID [Concomitant]
     Indication: PULMONARY TUBERCULOSIS
  7. ETHAMBUTOL [Concomitant]
     Indication: PULMONARY TUBERCULOSIS
  8. PYRAZINAMIDE [Concomitant]
     Indication: PULMONARY TUBERCULOSIS
  9. COTRIMOXAZOLE [Concomitant]
     Indication: PNEUMONIA
     Dosage: UNK
  10. COTRIMOXAZOLE [Concomitant]
     Indication: PROPHYLAXIS

REACTIONS (1)
  - Toxic epidermal necrolysis [Recovered/Resolved]
